FAERS Safety Report 5042766-6 (Version None)
Quarter: 2006Q3

REPORT INFORMATION
  Report Type: 
  Country: None (occurrence: None)
  Receive Date: 20060705
  Receipt Date: 20060623
  Transmission Date: 20061208
  Serious: Yes (Hospitalization)
  Sender: FDA-Public Use
  Company Number: US-KINGPHARMUSA00001-K200600815

PATIENT
  Age: 96 Year
  Sex: Female

DRUGS (11)
  1. ALTACE [Suspect]
     Indication: HYPERTENSION
     Dosage: 1.25 MG, QD
     Route: 048
     Dates: start: 20060224
  2. COLCHICINE [Suspect]
     Indication: CHONDROCALCINOSIS
     Dosage: .5 MG, QD
     Dates: start: 20060301, end: 20060309
  3. MOPRAL [Concomitant]
  4. DOLIPRANE [Concomitant]
  5. MOTILIUM [Concomitant]
  6. FORLAX [Concomitant]
     Route: 048
  7. TEMESTA [Concomitant]
     Route: 048
  8. ATHYMIL [Concomitant]
     Route: 048
  9. PREVISCAN [Concomitant]
     Route: 048
  10. LASILIX [Concomitant]
  11. OROCAL [Concomitant]
     Route: 048

REACTIONS (4)
  - ANAEMIA [None]
  - CHONDROCALCINOSIS [None]
  - JOINT EFFUSION [None]
  - MYELODYSPLASTIC SYNDROME [None]
